FAERS Safety Report 13897421 (Version 1)
Quarter: 2017Q3

REPORT INFORMATION
  Report Type: Spontaneous
  Country: MX (occurrence: MX)
  Receive Date: 20170823
  Receipt Date: 20170823
  Transmission Date: 20171127
  Serious: Yes (Other)
  Sender: FDA-Public Use
  Company Number: MX-PFIZER INC-2017364814

PATIENT
  Age: 71 Year
  Sex: Female

DRUGS (2)
  1. SALMETEROL [Concomitant]
     Active Substance: SALMETEROL
  2. ALDACTONE [Suspect]
     Active Substance: SPIRONOLACTONE
     Dosage: 25 MG, UNK

REACTIONS (2)
  - Seizure [Not Recovered/Not Resolved]
  - Mental impairment [Not Recovered/Not Resolved]
